FAERS Safety Report 4378847-X (Version None)
Quarter: 2004Q2

REPORT INFORMATION
  Report Type: 
  Country: None (occurrence: None)
  Receive Date: 20040609
  Receipt Date: 20040526
  Transmission Date: 20050107
  Serious: Yes (Death)
  Sender: FDA-Public Use
  Company Number: 2004-BP-04107NB

PATIENT
  Age: 44 Year
  Sex: Male

DRUGS (4)
  1. MOBIC [Suspect]
     Indication: CANCER PAIN
     Dosage: 10 MG, PO
     Route: 048
     Dates: start: 20030301, end: 20040401
  2. CARBOPLATIN (CARBOPLATIN) (AMV) [Concomitant]
  3. TAXOL (PACLITAXEL) (AMV) [Concomitant]
  4. MORPHINE HYDROCHLORIDE (MORPHINE HYDROCHLORIDE) (TA) [Concomitant]

REACTIONS (3)
  - ACUTE RESPIRATORY DISTRESS SYNDROME [None]
  - DRUG SCREEN FALSE POSITIVE [None]
  - METASTASIS [None]
